FAERS Safety Report 25237108 (Version 1)
Quarter: 2025Q2

REPORT INFORMATION
  Report Type: Spontaneous
  Country: US (occurrence: US)
  Receive Date: 20250425
  Receipt Date: 20250425
  Transmission Date: 20250717
  Serious: Yes (Hospitalization)
  Sender: BRISTOL-MYERS SQUIBB COMPANY
  Company Number: US-BRISTOL-MYERS SQUIBB COMPANY-2025-058152

PATIENT
  Age: 55 Year
  Sex: Male
  Weight: 95.25 kg

DRUGS (15)
  1. AUGTYRO [Suspect]
     Active Substance: REPOTRECTINIB
     Indication: Lung carcinoma cell type unspecified stage IV
     Route: 048
     Dates: start: 20250129
  2. AUGTYRO [Suspect]
     Active Substance: REPOTRECTINIB
     Indication: Gastric cancer
     Route: 048
  3. AUGTYRO [Suspect]
     Active Substance: REPOTRECTINIB
     Route: 048
  4. ACETAMINOPHEN [Concomitant]
     Active Substance: ACETAMINOPHEN
     Indication: Product used for unknown indication
  5. ESCITALOPRAM [Concomitant]
     Active Substance: ESCITALOPRAM OXALATE
     Indication: Product used for unknown indication
  6. TAMSULOSIN [Concomitant]
     Active Substance: TAMSULOSIN
     Indication: Product used for unknown indication
  7. LOVASTATIN [Concomitant]
     Active Substance: LOVASTATIN
     Indication: Product used for unknown indication
     Dosage: 1 A NIGHTLY
  8. LOVASTATIN [Concomitant]
     Active Substance: LOVASTATIN
     Dosage: 1 A NIGHTLY
  9. PROCHLORPERAZINE [Concomitant]
     Active Substance: PROCHLORPERAZINE
     Indication: Product used for unknown indication
  10. ONDANSETRON [Concomitant]
     Active Substance: ONDANSETRON
     Indication: Nausea
  11. ONDANSETRON [Concomitant]
     Active Substance: ONDANSETRON
     Indication: Insomnia
  12. LISINOPRIL [Concomitant]
     Active Substance: LISINOPRIL
     Indication: Product used for unknown indication
     Dates: end: 20250217
  13. CHLORTHALIDONE [Concomitant]
     Active Substance: CHLORTHALIDONE
     Indication: Product used for unknown indication
     Dates: end: 20250217
  14. AMLODIPINE [Concomitant]
     Active Substance: AMLODIPINE BESYLATE
     Indication: Product used for unknown indication
     Dates: end: 20250207
  15. MUCINEX [Concomitant]
     Active Substance: GUAIFENESIN
     Indication: Product used for unknown indication
     Dates: end: 20250207

REACTIONS (9)
  - Hypotension [Unknown]
  - Dehydration [Recovered/Resolved]
  - Constipation [Unknown]
  - Muscular weakness [Unknown]
  - Musculoskeletal discomfort [Unknown]
  - Hypertension [Unknown]
  - Vision blurred [Unknown]
  - Gait disturbance [Recovered/Resolved]
  - Suffocation feeling [Unknown]

NARRATIVE: CASE EVENT DATE: 20250201
